FAERS Safety Report 8934172 (Version 1)
Quarter: 2012Q4

REPORT INFORMATION
  Report Type: 
  Country: US (occurrence: US)
  Receive Date: 20121129
  Receipt Date: 20121129
  Transmission Date: 20130627
  Serious: No
  Sender: FDA-Public Use
  Company Number: US-GLAXOSMITHKLINE-A0988344A

PATIENT
  Sex: Female
  Weight: 66.7 kg

DRUGS (1)
  1. WELLBUTRIN SR [Suspect]
     Indication: AFFECTIVE DISORDER
     Dosage: 200MG Unknown
     Route: 065
     Dates: start: 20120716

REACTIONS (1)
  - Therapeutic response unexpected [Unknown]
